FAERS Safety Report 25005546 (Version 1)
Quarter: 2025Q1

REPORT INFORMATION
  Report Type: Spontaneous
  Country: US (occurrence: US)
  Receive Date: 20250224
  Receipt Date: 20250224
  Transmission Date: 20250409
  Serious: Yes (Other)
  Sender: AMGEN
  Company Number: US-AMGEN-USASP2025032850

PATIENT
  Age: 37 Year
  Sex: Male

DRUGS (11)
  1. BEVACIZUMAB [Suspect]
     Active Substance: BEVACIZUMAB
     Indication: Metastases to central nervous system
     Route: 065
     Dates: start: 202404
  2. METHOTREXATE [Concomitant]
     Active Substance: METHOTREXATE
     Dates: start: 202104
  3. VINBLASTINE [Concomitant]
     Active Substance: VINBLASTINE
     Dates: start: 202104
  4. DOXORUBICIN [Concomitant]
     Active Substance: DOXORUBICIN
     Dates: start: 202104
  5. CISPLATIN [Concomitant]
     Active Substance: CISPLATIN
     Dates: start: 202104
  6. PEMBROLIZUMAB [Concomitant]
     Active Substance: PEMBROLIZUMAB
     Dates: start: 202205
  7. PEMBROLIZUMAB [Concomitant]
     Active Substance: PEMBROLIZUMAB
     Dates: start: 202207
  8. PEMBROLIZUMAB [Concomitant]
     Active Substance: PEMBROLIZUMAB
     Dates: start: 202208
  9. PEMBROLIZUMAB [Concomitant]
     Active Substance: PEMBROLIZUMAB
     Dates: start: 202209
  10. SACITUZUMAB GOVITECAN [Concomitant]
     Active Substance: SACITUZUMAB GOVITECAN
     Dates: start: 202211, end: 202303
  11. ENFORTUMAB VEDOTIN [Concomitant]
     Active Substance: ENFORTUMAB VEDOTIN
     Dates: start: 202211, end: 202303

REACTIONS (2)
  - Thalamic infarction [Unknown]
  - Off label use [Unknown]
